FAERS Safety Report 7073472-4 (Version None)
Quarter: 2010Q4

REPORT INFORMATION
  Report Type: 
  Country: None (occurrence: None)
  Receive Date: 20101029
  Receipt Date: 20100622
  Transmission Date: 20110411
  Serious: No
  Sender: FDA-Public Use
  Company Number: A0866582A

PATIENT
  Age: 86 Year
  Sex: Female

DRUGS (3)
  1. ADVAIR DISKUS 100/50 [Suspect]
     Route: 055
  2. MULTIPLE MEDICATIONS [Concomitant]
  3. HEART MEDICATION [Concomitant]

REACTIONS (2)
  - DRY MOUTH [None]
  - HEADACHE [None]
